FAERS Safety Report 17123405 (Version 1)
Quarter: 2019Q4

REPORT INFORMATION
  Report Type: Spontaneous
  Country: JP (occurrence: JP)
  Receive Date: 20191206
  Receipt Date: 20191206
  Transmission Date: 20200122
  Serious: Yes (Other)
  Sender: FDA-Public Use
  Company Number: JP-GALDERMA-JP19073206

PATIENT
  Age: 62 Year
  Sex: Male

DRUGS (3)
  1. APREMILAST [Concomitant]
     Active Substance: APREMILAST
     Indication: PUSTULAR PSORIASIS
     Route: 065
  2. CLOBETASOL PROPIONATE LOTION [Suspect]
     Active Substance: CLOBETASOL PROPIONATE
     Indication: PUSTULAR PSORIASIS
     Dosage: 0.05%
     Route: 061
  3. METHOTREXATE. [Concomitant]
     Active Substance: METHOTREXATE
     Indication: ARTHRALGIA
     Route: 065

REACTIONS (3)
  - Skin atrophy [Recovering/Resolving]
  - Drug ineffective [Recovered/Resolved]
  - Product use in unapproved indication [Recovered/Resolved]
